FAERS Safety Report 23238349 (Version 1)
Quarter: 2023Q4

REPORT INFORMATION
  Report Type: Report from Study
  Country: US (occurrence: US)
  Receive Date: 20231129
  Receipt Date: 20231129
  Transmission Date: 20240110
  Serious: Yes (Other)
  Sender: FDA-Public Use
  Company Number: US-ABBVIE-5516985

PATIENT
  Sex: Male
  Weight: 92 kg

DRUGS (20)
  1. VENCLEXTA [Suspect]
     Active Substance: VENETOCLAX
     Indication: Acute myeloid leukaemia
     Dosage: STRENGTH- 100 MG TAKE 4 TABLET 400 MG DAILY PO DAYS 1-14 OF 28 DAYS CYCLE, 11 REFILLS FIRST CYCLE...
     Route: 048
  2. ACETAMINOPHEN [Concomitant]
     Active Substance: ACETAMINOPHEN
     Indication: Product used for unknown indication
     Dosage: TAKE 2 TABLETS BY MOUTH EVERY 6 HOURS AS NEEDED.
  3. VALTREX [Concomitant]
     Active Substance: VALACYCLOVIR HYDROCHLORIDE
     Indication: Product used for unknown indication
     Route: 048
  4. ALBUTEROL SULFATE [Concomitant]
     Active Substance: ALBUTEROL SULFATE
     Indication: Dyspnoea
     Dosage: 90 MCG/ACTUATION AEROSOL INHALER?TAKE 2 PUFFS BY INHALATION EVERY 6 HOURS AS NEEDED FOR SHORTNESS...
     Route: 055
  5. ZYLOPRIM [Concomitant]
     Active Substance: ALLOPURINOL
     Indication: Product used for unknown indication
     Dosage: TAKE 1 TABLET (300 MG) BY MOUTH ONCE DAILY AFTER BREAKFAST.
     Route: 048
  6. XANAX [Concomitant]
     Active Substance: ALPRAZOLAM
     Indication: Anxiety
     Dosage: TAKA ONE-HALF TABLET (0.5 MG) BY MOUTH NIGHTLY AS NEEDED FOR ANXIETY
     Route: 048
  7. IDHIFA [Concomitant]
     Active Substance: ENASIDENIB MESYLATE
     Indication: Product used for unknown indication
     Dosage: TAKE 1 TABLET (100 MG) BY MOUTH ONCE DAILY
     Route: 048
  8. BREO ELLIPTA [Concomitant]
     Active Substance: FLUTICASONE FUROATE\VILANTEROL TRIFENATATE
     Indication: Product used for unknown indication
     Dosage: 100-23MCG/DOSE DISK WITH DEVICE TAKE 1 PUFF BY INHALATION DAILY
     Route: 055
  9. MUCINEX [Concomitant]
     Active Substance: GUAIFENESIN
     Indication: Product used for unknown indication
     Dosage: TAKE 1 TABLET (1,200 MG) BY MOUTH EVERY 12 HOURS?TABLET EXTENDED RELEASE
     Route: 048
  10. LEVAQUIN [Concomitant]
     Active Substance: LEVOFLOXACIN
     Indication: Product used for unknown indication
     Route: 048
  11. LEVOTHYROXINE SODIUM [Concomitant]
     Active Substance: LEVOTHYROXINE SODIUM
     Indication: Product used for unknown indication
     Dosage: TAKE 1 TABLET (100 MCG) BY MOUTH DAILY IN THE MORNING
     Route: 048
  12. MAGNESIUM HYDROXIDE [Concomitant]
     Active Substance: MAGNESIUM HYDROXIDE
     Indication: Product used for unknown indication
     Dosage: 400 MG/5 ML ORAL SUSPENSION
     Route: 048
  13. REMERON [Concomitant]
     Active Substance: MIRTAZAPINE
     Indication: Product used for unknown indication
     Route: 048
  14. NARCAN [Concomitant]
     Active Substance: NALOXONE HYDROCHLORIDE
     Indication: Product used for unknown indication
     Dosage: NON-AEROSOL?ADMINISTER 1 SPRAY (4 MG) IN ONE NOSTRIL ONE TIME. MAY? REPEAT IN ALTERNATING NOSTRIL...
  15. ZOFRAN [Concomitant]
     Active Substance: ONDANSETRON HYDROCHLORIDE
     Indication: Nausea
     Dosage: TAKE 30 MINUTES PRIOR TO EACH DOSE OF CHEMOTHERAPY, EVEN IF YOU HAVE NOT? EXPERIENCED NAUSEA OR V...
     Route: 048
  16. PERCOCET [Concomitant]
     Active Substance: ACETAMINOPHEN\OXYCODONE HYDROCHLORIDE
     Indication: Pain
     Dosage: TIME INTERVAL: 0.16666667 HOURS: 5-325 MG TABLET
     Route: 048
  17. OXYGEN [Concomitant]
     Active Substance: OXYGEN
     Indication: Product used for unknown indication
     Dosage: ADMINISTER 3 L/MIN IN EACH NOSTRIL CONTINUOUSLY
     Route: 045
  18. COMPAZINE [Concomitant]
     Active Substance: PROCHLORPERAZINE MALEATE
     Indication: Nausea
     Dosage: TIME INTERVAL: 0.16666667 HOURS
     Route: 048
  19. MAXZIDE [Concomitant]
     Active Substance: HYDROCHLOROTHIAZIDE\TRIAMTERENE
     Indication: Product used for unknown indication
     Dosage: 75-50 MG TABLET
     Route: 048
  20. CHLORHEXIDINE GLUCONATE [Concomitant]
     Active Substance: CHLORHEXIDINE GLUCONATE
     Indication: Product used for unknown indication
     Dosage: 15 ML BY MOUTH/THROAT ROUTE 2 TIMES DALLY.
     Route: 048

REACTIONS (25)
  - Wrist fracture [Unknown]
  - Immunosuppression [Unknown]
  - Asthenia [Unknown]
  - Constipation [Unknown]
  - Off label use [Unknown]
  - Hypothyroidism [Unknown]
  - Arthritis [Unknown]
  - Hyperbilirubinaemia [Unknown]
  - Myelodysplastic syndrome [Unknown]
  - Bronchitis [Unknown]
  - Malnutrition [Unknown]
  - Essential hypertension [Unknown]
  - Clostridial sepsis [Unknown]
  - Acute respiratory failure [Unknown]
  - Balance disorder [Unknown]
  - Anaemia [Unknown]
  - Pancytopenia [Unknown]
  - Thrombocytopenia [Unknown]
  - Liver function test increased [Unknown]
  - Chronic obstructive pulmonary disease [Unknown]
  - Nausea [Unknown]
  - Vitamin B12 decreased [Unknown]
  - Myelodysplastic syndrome with excess blasts [Unknown]
  - Tooth abscess [Unknown]
  - Febrile neutropenia [Unknown]
